FAERS Safety Report 4326635-2 (Version None)
Quarter: 2004Q1

REPORT INFORMATION
  Report Type: 
  Country: None (occurrence: None)
  Receive Date: 20040329
  Receipt Date: 20040329
  Transmission Date: 20041129
  Serious: No
  Sender: FDA-Public Use
  Company Number: None

PATIENT
  Age: 44 Year
  Sex: Female

DRUGS (4)
  1. CYTOXAN [Suspect]
     Indication: SYSTEMIC SCLEROSIS
     Dosage: 400 MG/M2 DAILY X 5 INTRAVENOUS
     Route: 042
     Dates: start: 20040308, end: 20040312
  2. FLUDARABINE PHOSPHATE [Suspect]
     Indication: SYSTEMIC SCLEROSIS
     Dosage: 25 MG.M2 DAILY X 5 INTRAVENOUS
     Route: 042
     Dates: start: 20040308, end: 20040312
  3. THYMOGLOBULIN [Concomitant]
  4. MESNA [Concomitant]

REACTIONS (3)
  - CARDIAC TAMPONADE [None]
  - PERICARDIAL EFFUSION [None]
  - PLEURAL EFFUSION [None]
